FAERS Safety Report 19706606 (Version 1)
Quarter: 2021Q3

REPORT INFORMATION
  Report Type: Spontaneous
  Country: US (occurrence: US)
  Receive Date: 20210816
  Receipt Date: 20210816
  Transmission Date: 20211014
  Serious: Yes (Hospitalization)
  Sender: FDA-Public Use
  Company Number: None

PATIENT
  Age: 58 Year
  Sex: Female

DRUGS (1)
  1. CAPECITABINE TAB 500MG [Suspect]
     Active Substance: CAPECITABINE
     Route: 048
     Dates: start: 202107

REACTIONS (11)
  - Transfusion [None]
  - Neuropathy peripheral [None]
  - Insomnia [None]
  - Malaise [None]
  - Headache [None]
  - Therapy interrupted [None]
  - Muscle spasms [None]
  - Dyspnoea [None]
  - Abdominal distension [None]
  - Tracheal disorder [None]
  - Dry skin [None]

NARRATIVE: CASE EVENT DATE: 20210801
